FAERS Safety Report 21911785 (Version 2)
Quarter: 2023Q1

REPORT INFORMATION
  Report Type: Spontaneous
  Country: US (occurrence: US)
  Receive Date: 20230125
  Receipt Date: 20230125
  Transmission Date: 20230418
  Serious: Yes (Other)
  Sender: FDA-Public Use
  Company Number: US-GILEAD-2023-0613991

PATIENT
  Age: 39 Year
  Sex: Female

DRUGS (1)
  1. BIKTARVY [Suspect]
     Active Substance: BICTEGRAVIR SODIUM\EMTRICITABINE\TENOFOVIR ALAFENAMIDE FUMARATE
     Indication: HIV infection
     Dosage: PEDIATRIC TABS ORDERED INSTEAD OF ADULT DOSE
     Route: 065
     Dates: start: 20220418, end: 20221129

REACTIONS (1)
  - Wrong dose [Recovered/Resolved]
